FAERS Safety Report 16801458 (Version 1)
Quarter: 2019Q3

REPORT INFORMATION
  Report Type: Report from Study
  Country: CA (occurrence: CA)
  Receive Date: 20190912
  Receipt Date: 20190912
  Transmission Date: 20191005
  Serious: Yes (Other)
  Sender: FDA-Public Use
  Company Number: CA-HLSUS-2019-CA-001056

PATIENT
  Sex: Male

DRUGS (2)
  1. VENLAFAXINE [Concomitant]
     Active Substance: VENLAFAXINE HYDROCHLORIDE
     Dosage: 250MG/DAY
  2. CLOZARIL [Suspect]
     Active Substance: CLOZAPINE
     Dosage: 575MG DAILY DIVIDED DOSES
     Route: 048
     Dates: start: 20040607

REACTIONS (1)
  - Colon cancer metastatic [Unknown]
